FAERS Safety Report 9618136 (Version 2)
Quarter: 2013Q4

REPORT INFORMATION
  Report Type: Report from Study
  Country: JP (occurrence: JP)
  Receive Date: 20131014
  Receipt Date: 20131120
  Transmission Date: 20140711
  Serious: Yes (Hospitalization)
  Sender: FDA-Public Use
  Company Number: JP-PFIZER INC-2013288443

PATIENT
  Age: 71 Year
  Sex: Female
  Weight: 41 kg

DRUGS (25)
  1. FORTEO [Concomitant]
     Indication: PROPHYLAXIS
     Dosage: 600 UG DAILY
     Route: 058
     Dates: start: 20121106
  2. MOHRUS [Concomitant]
     Indication: RHEUMATOID ARTHRITIS
     Dosage: 1 DF, AS NEEDED
     Route: 062
     Dates: start: 20090706
  3. VFEND [Concomitant]
     Dosage: 150 MG, DAILY
     Dates: start: 20130729
  4. VFEND [Concomitant]
     Dosage: 200 MG, DAILY
     Dates: start: 20130802
  5. BACTRAMIN [Concomitant]
     Dosage: 9 TABLETS, DAILY
     Dates: start: 20130729
  6. BACTRAMIN [Concomitant]
     Dosage: 6 TABLETS DAILY
     Dates: start: 20130801, end: 20130821
  7. DENOSINE ^TANABE^ [Concomitant]
     Dosage: 200 MG, DAILY
     Dates: start: 20130808
  8. UBRETID [Concomitant]
     Dosage: UNK
     Dates: start: 20130820
  9. SAMTIREL [Concomitant]
     Dosage: UNK
     Dates: start: 20130821
  10. ALLELOCK [Concomitant]
     Dosage: UNK
     Dates: start: 20130821
  11. FLUMETHOLON [Concomitant]
     Indication: DRY EYE
  12. TEARBALANCE [Concomitant]
     Indication: DRY EYE
  13. LULICONAZOLE [Concomitant]
     Indication: TINEA PEDIS
  14. MEVALOTIN [Concomitant]
     Indication: HYPERCHOLESTEROLAEMIA
  15. TOFACITINIB CITRATE [Suspect]
     Indication: RHEUMATOID ARTHRITIS
     Dosage: 5 MG, 2X/DAY
     Route: 048
     Dates: start: 20080808, end: 20130726
  16. MEDROL [Suspect]
     Indication: PNEUMOCYSTIS JIROVECII PNEUMONIA
     Dosage: 80 MG, DAILY
     Dates: start: 20130731, end: 20130801
  17. MEDROL [Suspect]
     Dosage: 40 MG, DAILY
     Dates: start: 20130805, end: 20130809
  18. MEDROL [Suspect]
     Dosage: 20 MG, DAILY
     Dates: start: 20130810, end: 20130819
  19. METHYLPREDNISOLONE/SUCCINATE SODIUM [Suspect]
     Indication: PNEUMOCYSTIS JIROVECII PNEUMONIA
     Dosage: 1040 MG, DAILY
     Route: 042
     Dates: start: 20130802, end: 20130802
  20. METHYLPREDNISOLONE/SUCCINATE SODIUM [Suspect]
     Dosage: 1000 MG, DAILY
     Route: 042
     Dates: start: 20130803, end: 20130804
  21. PARIET [Concomitant]
     Indication: PROPHYLAXIS AGAINST GASTROINTESTINAL ULCER
     Dosage: 10 MG, DAILY
     Route: 048
     Dates: start: 20071112
  22. CELECOX [Concomitant]
     Indication: RHEUMATOID ARTHRITIS
     Dosage: 200 MG, DAILY
     Route: 048
     Dates: start: 20120116
  23. RULID [Concomitant]
     Indication: BRONCHIECTASIS
     Dosage: 150 MG, DAILY
     Route: 048
     Dates: start: 20080501
  24. MICARDIS [Concomitant]
     Indication: HYPERTENSION
     Dosage: 20 MG, DAILY
     Route: 048
     Dates: start: 20120925
  25. FERROMIA [Concomitant]
     Indication: IRON DEFICIENCY ANAEMIA
     Dosage: 50 MG, DAILY
     Route: 048
     Dates: start: 20120426

REACTIONS (1)
  - Herpes zoster [Recovered/Resolved]
